FAERS Safety Report 8106975-1 (Version None)
Quarter: 2011Q4

REPORT INFORMATION
  Report Type: 
  Country: None (occurrence: None)
  Receive Date: 20111223
  Receipt Date: 20110428
  Transmission Date: 20120403
  Serious: Yes (Hospitalization, Other)
  Sender: FDA-Public Use
  Company Number: PHHY2011US36366

PATIENT
  Age: 35 Year
  Sex: Female

DRUGS (1)
  1. PARLODEL [Suspect]
     Dosage: 5 MG

REACTIONS (1)
  - CONVULSION [None]
